FAERS Safety Report 11176855 (Version 1)
Quarter: 2015Q2

REPORT INFORMATION
  Report Type: Spontaneous
  Country: US (occurrence: None)
  Receive Date: 20150515
  Receipt Date: 20150515
  Transmission Date: 20150821
  Serious: Yes (Other)
  Sender: FDA-Public Use
  Company Number: 2015003953

PATIENT
  Age: 48 Year
  Sex: Female

DRUGS (7)
  1. ZOFRAN (ONADNSETRON  HYDROCHLORIDE) [Concomitant]
  2. CIMZIA [Suspect]
     Active Substance: CERTOLIZUMAB PEGOL
     Indication: CROHN^S DISEASE
     Route: 058
     Dates: start: 201409
  3. NEXIUM [Concomitant]
     Active Substance: ESOMEPRAZOLE MAGNESIUM
  4. HUMIRA [Suspect]
     Active Substance: ADALIMUMAB
     Indication: CROHN^S DISEASE
  5. AZATHIOPRINE (AZATHIOPRINE) [Concomitant]
     Active Substance: AZATHIOPRINE
  6. CELEXA [Concomitant]
     Active Substance: CITALOPRAM HYDROBROMIDE
  7. CLOBETASOL PROPIONATE (CLOBETASOL PROPIONATE) [Concomitant]

REACTIONS (3)
  - Psoriasis [None]
  - Injection site pain [None]
  - Furuncle [None]

NARRATIVE: CASE EVENT DATE: 201409
